FAERS Safety Report 5636780-7 (Version None)
Quarter: 2008Q1

REPORT INFORMATION
  Report Type: 
  Country: None (occurrence: None)
  Receive Date: 20080225
  Receipt Date: 20080129
  Transmission Date: 20080703
  Serious: Yes (Life-Threatening)
  Sender: FDA-Public Use
  Company Number: US-NOVOPROD-271531

PATIENT

DRUGS (8)
  1. NOVOSEVEN [Suspect]
     Indication: FACTOR VII DEFICIENCY
     Dosage: 1.2 MG, SINGLE
     Route: 042
     Dates: start: 20080125, end: 20080125
  2. HYDROCHLOROTHIAZIDE [Concomitant]
     Indication: HYPERTENSION
     Dosage: 25 MG, QD
     Route: 048
     Dates: end: 20080125
  3. BENAZEPRIL HYDROCHLORIDE [Concomitant]
     Indication: HYPERTENSION
     Dosage: 20 MG, QD
     Route: 048
     Dates: end: 20080125
  4. CRESTOR [Concomitant]
     Indication: DYSLIPIDAEMIA
     Dosage: 10 MG, QD
     Route: 048
  5. ASPIRIN [Concomitant]
     Indication: DRUG USE FOR UNKNOWN INDICATION
     Dosage: 81 MG, QD
     Route: 048
     Dates: start: 20080119
  6. DARVOCET-N 100 [Concomitant]
     Indication: DRUG USE FOR UNKNOWN INDICATION
     Dosage: 100 UNK, PRN
     Route: 048
  7. LEVAQUIN [Concomitant]
     Indication: PREOPERATIVE CARE
     Dosage: 500 MG, QD
     Route: 048
     Dates: start: 20080118, end: 20080125
  8. HUMALOG [Concomitant]
     Indication: BLOOD GLUCOSE INCREASED
     Dosage: SLIDING SCALE
     Route: 058
     Dates: start: 20080118

REACTIONS (6)
  - BLOOD MAGNESIUM DECREASED [None]
  - BLOOD POTASSIUM DECREASED [None]
  - BRAIN DEATH [None]
  - CEREBRAL INFARCTION [None]
  - CONVULSION [None]
  - HEMIPARESIS [None]
